FAERS Safety Report 13233536 (Version 1)
Quarter: 2017Q1

REPORT INFORMATION
  Report Type: Report from Study
  Country: CN (occurrence: CN)
  Receive Date: 20170215
  Receipt Date: 20170215
  Transmission Date: 20170428
  Serious: Yes (Other)
  Sender: FDA-Public Use
  Company Number: CN-ROCHE-1890186

PATIENT
  Age: 49 Year
  Sex: Male

DRUGS (9)
  1. ETOPOSIDE. [Suspect]
     Active Substance: ETOPOSIDE
     Indication: NON-HODGKIN^S LYMPHOMA
     Route: 065
  2. ZIDOVUDINE. [Suspect]
     Active Substance: ZIDOVUDINE
     Indication: ACQUIRED IMMUNODEFICIENCY SYNDROME
     Route: 065
  3. CYCLOPHOSPHAMIDE. [Suspect]
     Active Substance: CYCLOPHOSPHAMIDE
     Indication: NON-HODGKIN^S LYMPHOMA
     Route: 065
  4. LAMIVUDINE. [Suspect]
     Active Substance: LAMIVUDINE
     Indication: ACQUIRED IMMUNODEFICIENCY SYNDROME
     Route: 065
  5. RITUXIMAB [Suspect]
     Active Substance: RITUXIMAB
     Indication: NON-HODGKIN^S LYMPHOMA
     Route: 065
  6. VINCRISTINE [Suspect]
     Active Substance: VINCRISTINE
     Indication: NON-HODGKIN^S LYMPHOMA
     Route: 065
  7. PREDNISOLONE. [Suspect]
     Active Substance: PREDNISOLONE
     Indication: NON-HODGKIN^S LYMPHOMA
     Route: 065
  8. NEVIRAPINE. [Suspect]
     Active Substance: NEVIRAPINE
     Indication: ACQUIRED IMMUNODEFICIENCY SYNDROME
     Route: 065
  9. DOXORUBICIN [Suspect]
     Active Substance: DOXORUBICIN
     Indication: NON-HODGKIN^S LYMPHOMA
     Route: 065

REACTIONS (2)
  - Gastrointestinal disorder [Unknown]
  - Bone marrow failure [Unknown]
